FAERS Safety Report 21409191 (Version 5)
Quarter: 2023Q1

REPORT INFORMATION
  Report Type: Report from Study
  Country: US (occurrence: None)
  Receive Date: 20221004
  Receipt Date: 20230302
  Transmission Date: 20230418
  Serious: Yes (Hospitalization)
  Sender: FDA-Public Use
  Company Number: US-ROCHE-3176029

PATIENT
  Age: 67 Year
  Sex: Male
  Weight: 94.2 kg

DRUGS (52)
  1. CEVOSTAMAB [Suspect]
     Active Substance: CEVOSTAMAB
     Indication: Plasma cell myeloma
     Dosage: DOSE LAST STUDY DRUG ADMIN PRIOR AE IS 90 MG DOSE LAST STUDY DRUG ADMIN PRIOR SAE IS 90 MG?START AND
     Route: 042
     Dates: start: 20220322
  2. TOCILIZUMAB [Suspect]
     Active Substance: TOCILIZUMAB
     Indication: Plasma cell myeloma
     Dosage: START DATE OF MOST RECENT DOSE OF A DRUG ADMIN PRIOR TO SAE IS 800MG ON 23/MAR/2022
     Route: 042
     Dates: start: 20220323
  3. MIRAPEX [Concomitant]
     Active Substance: PRAMIPEXOLE DIHYDROCHLORIDE
     Indication: Restless legs syndrome
     Route: 048
     Dates: start: 20220715, end: 20220913
  4. TRULICITY [Concomitant]
     Active Substance: DULAGLUTIDE
     Indication: Type 2 diabetes mellitus
     Route: 058
     Dates: start: 20220715
  5. GUAITUSSIN AC [Concomitant]
     Indication: Cough
     Route: 048
     Dates: start: 20220812, end: 20220818
  6. SODIUM CHLORIDE [Concomitant]
     Active Substance: SODIUM CHLORIDE
     Route: 042
     Dates: start: 20220816, end: 20220816
  7. HEPARIN [Concomitant]
     Active Substance: HEPARIN SODIUM
     Route: 042
     Dates: start: 20220816, end: 20220816
  8. HEPARIN [Concomitant]
     Active Substance: HEPARIN SODIUM
     Dosage: DRUG DOSE FIRST ADMINISTERED IS 500 U ;ONGOING: NO
     Route: 042
     Dates: start: 20220826, end: 20220826
  9. OPTIRAY 350 [Concomitant]
     Active Substance: IOVERSOL
     Route: 042
     Dates: start: 20220816, end: 20220816
  10. LEVAQUIN [Concomitant]
     Active Substance: LEVOFLOXACIN
     Indication: Pneumonia
     Route: 048
     Dates: start: 20220817, end: 20220827
  11. GADOTERATE SODIUM [Concomitant]
     Active Substance: GADOTERATE SODIUM
     Route: 042
     Dates: start: 20220830, end: 20220830
  12. VASOPRESSIN [Concomitant]
     Active Substance: VASOPRESSIN
     Indication: Hypotension
  13. ZOVIRAX [Concomitant]
     Active Substance: ACYCLOVIR
     Indication: Prophylaxis
     Route: 048
     Dates: start: 20220906, end: 20220913
  14. ASPIRIN [Concomitant]
     Active Substance: ASPIRIN
     Indication: Cerebral ischaemia
     Route: 048
     Dates: start: 20220907, end: 20220907
  15. TESSALON [Concomitant]
     Active Substance: BENZONATATE
     Indication: Cough
     Route: 048
     Dates: start: 20220908, end: 20220910
  16. TESSALON [Concomitant]
     Active Substance: BENZONATATE
     Route: 048
     Dates: start: 20220811, end: 20220817
  17. TRICOR [Concomitant]
     Active Substance: FENOFIBRATE
     Indication: Hyperlipidaemia
     Route: 048
     Dates: start: 20220906, end: 20220913
  18. ARNUITY ELLIPTA [Concomitant]
     Active Substance: FLUTICASONE FUROATE
     Indication: Asthma
     Dosage: 1 PUFF
     Route: 055
     Dates: start: 20220907, end: 20220913
  19. HUMALOG [Concomitant]
     Active Substance: INSULIN LISPRO
     Indication: Diabetes mellitus
     Dosage: 1 U
     Route: 058
     Dates: start: 20220908, end: 20220912
  20. HUMALOG [Concomitant]
     Active Substance: INSULIN LISPRO
     Dosage: 2 U
     Route: 058
     Dates: start: 20220907, end: 20220913
  21. KEPPRA [Concomitant]
     Active Substance: LEVETIRACETAM
     Indication: Seizure
     Route: 048
     Dates: start: 20220906, end: 20220913
  22. MAGNESIUM OXIDE [Concomitant]
     Active Substance: MAGNESIUM OXIDE
     Indication: Prophylaxis
     Route: 048
     Dates: start: 20220907, end: 20220913
  23. PROTONIX [Concomitant]
     Active Substance: PANTOPRAZOLE SODIUM
     Indication: Prophylaxis
     Route: 048
     Dates: start: 20220907, end: 20220913
  24. COMPAZINE [Concomitant]
     Active Substance: PROCHLORPERAZINE MALEATE
     Indication: Prophylaxis of nausea and vomiting
     Route: 048
     Dates: start: 20220909, end: 20220913
  25. REQUIP [Concomitant]
     Active Substance: ROPINIROLE HYDROCHLORIDE
     Indication: Restless legs syndrome
     Route: 048
     Dates: start: 20220906, end: 20220912
  26. ZOLOFT [Concomitant]
     Active Substance: SERTRALINE HYDROCHLORIDE
     Indication: Anxiety
     Route: 048
     Dates: start: 20220907, end: 20220913
  27. ZOLOFT [Concomitant]
     Active Substance: SERTRALINE HYDROCHLORIDE
     Indication: Depression
  28. EFFEXOR XR [Concomitant]
     Active Substance: VENLAFAXINE HYDROCHLORIDE
     Indication: Anxiety
     Route: 048
     Dates: start: 20220907, end: 20220913
  29. ZYLOPRIM [Concomitant]
     Active Substance: ALLOPURINOL
     Indication: Hyperuricaemia
     Route: 048
     Dates: start: 20220907, end: 20220907
  30. ROBITUSSIN DM [Concomitant]
     Active Substance: DEXTROMETHORPHAN HYDROBROMIDE\GUAIFENESIN
     Indication: Cough
     Route: 048
     Dates: start: 20220908, end: 20220911
  31. GLUCOPHAGE [Concomitant]
     Active Substance: METFORMIN HYDROCHLORIDE
     Indication: Diabetes mellitus
     Route: 048
     Dates: start: 20200630, end: 20220830
  32. TRIGLIDE [Concomitant]
     Active Substance: FENOFIBRATE
     Indication: Hyperlipidaemia
     Route: 048
     Dates: start: 20200924
  33. TYLENOL [Concomitant]
     Active Substance: ACETAMINOPHEN
     Indication: Pyrexia
     Route: 048
     Dates: start: 20220907, end: 20220913
  34. ALBUTEROL [Concomitant]
     Active Substance: ALBUTEROL
     Indication: Dyspnoea
     Dosage: 2.5MG/0.5
     Route: 055
     Dates: start: 20220909, end: 20220909
  35. CIPROFLOXACIN [Concomitant]
     Active Substance: CIPROFLOXACIN
     Route: 048
     Dates: start: 20220913, end: 20220913
  36. CEFEPIME [Concomitant]
     Active Substance: CEFEPIME HYDROCHLORIDE
     Indication: Febrile neutropenia
     Route: 042
     Dates: start: 20220907, end: 20220913
  37. CEFEPIME [Concomitant]
     Active Substance: CEFEPIME HYDROCHLORIDE
     Route: 042
     Dates: start: 20220924, end: 20220925
  38. VIDAZA [Concomitant]
     Active Substance: AZACITIDINE
     Indication: Acute erythroid leukaemia
     Route: 042
     Dates: start: 20221011, end: 20221011
  39. VIDAZA [Concomitant]
     Active Substance: AZACITIDINE
     Route: 042
     Dates: start: 20221012, end: 20221012
  40. VIDAZA [Concomitant]
     Active Substance: AZACITIDINE
     Route: 042
     Dates: start: 20221006, end: 20221006
  41. JAKAFI [Concomitant]
     Active Substance: RUXOLITINIB
     Indication: Myelofibrosis
     Route: 048
     Dates: start: 20220926, end: 20220927
  42. JAKAFI [Concomitant]
     Active Substance: RUXOLITINIB
     Route: 048
     Dates: start: 20221001, end: 20221004
  43. JAKAFI [Concomitant]
     Active Substance: RUXOLITINIB
     Route: 048
     Dates: start: 20221004, end: 20221005
  44. JAKAFI [Concomitant]
     Active Substance: RUXOLITINIB
     Dates: start: 20221008, end: 20221012
  45. JAKAFI [Concomitant]
     Active Substance: RUXOLITINIB
     Route: 048
     Dates: start: 20221012, end: 20221022
  46. KINERET [Concomitant]
     Active Substance: ANAKINRA
     Indication: Haemophagocytic lymphohistiocytosis
     Route: 058
     Dates: start: 20221006, end: 20221013
  47. DECADRON [Concomitant]
     Active Substance: DEXAMETHASONE
     Indication: Haemophagocytic lymphohistiocytosis
     Route: 048
     Dates: start: 20220926, end: 20220929
  48. DECADRON [Concomitant]
     Active Substance: DEXAMETHASONE
     Route: 042
     Dates: start: 20220929, end: 20221001
  49. DECADRON [Concomitant]
     Active Substance: DEXAMETHASONE
     Route: 042
     Dates: start: 20221006, end: 20221014
  50. DECADRON [Concomitant]
     Active Substance: DEXAMETHASONE
     Route: 042
     Dates: start: 20221001, end: 20221006
  51. DECADRON [Concomitant]
     Active Substance: DEXAMETHASONE
     Route: 042
     Dates: start: 20221014, end: 20221022
  52. DELTASONE [Concomitant]
     Active Substance: PREDNISONE
     Indication: Hypoxia
     Route: 048
     Dates: start: 20220925, end: 20220926

REACTIONS (2)
  - Pneumonia [Recovered/Resolved with Sequelae]
  - Acute respiratory failure [Not Recovered/Not Resolved]

NARRATIVE: CASE EVENT DATE: 20220906
